FAERS Safety Report 7772337-X (Version None)
Quarter: 2011Q3

REPORT INFORMATION
  Report Type: 
  Country: None (occurrence: None)
  Receive Date: 20110922
  Receipt Date: 20100115
  Transmission Date: 20111222
  Serious: No
  Sender: FDA-Public Use
  Company Number: US-ASTRAZENECA-2009SE21040

PATIENT
  Age: 17345 Day
  Sex: Female
  Weight: 122.5 kg

DRUGS (9)
  1. SEROQUEL [Suspect]
     Indication: BIPOLAR DISORDER
     Dosage: 25 TO 100 MG/DAY
     Route: 048
     Dates: start: 20040101, end: 20080101
  2. RISPERDAL [Concomitant]
     Dates: start: 20070401
  3. WELLBUTRIN [Concomitant]
     Dates: start: 20070401
  4. KLONOPIN [Concomitant]
     Dates: start: 20070401
  5. SEROQUEL [Suspect]
     Dosage: 1-4 AT BEDTIME
     Route: 048
     Dates: start: 20070406
  6. NEURONTIN [Concomitant]
     Dosage: 600 MG IN AM AND 900 MG IN PM
  7. CYMBALTA [Concomitant]
  8. TRAZODONE HYDROCHLORIDE [Concomitant]
     Dosage: 100-200MG AT BEDTIME
     Dates: start: 20070401
  9. DEXATRIM [Concomitant]
     Dates: start: 19780101

REACTIONS (4)
  - OBESITY [None]
  - HYPERGLYCAEMIA [None]
  - WEIGHT INCREASED [None]
  - TYPE 2 DIABETES MELLITUS [None]
